FAERS Safety Report 24347718 (Version 3)
Quarter: 2024Q4

REPORT INFORMATION
  Report Type: Spontaneous
  Country: IT (occurrence: IT)
  Receive Date: 20240922
  Receipt Date: 20241015
  Transmission Date: 20250115
  Serious: Yes (Life-Threatening, Hospitalization, Other)
  Sender: NOVARTIS
  Company Number: IT-002147023-NVSC2024IT185607

PATIENT
  Age: 45 Year
  Sex: Female

DRUGS (4)
  1. DEFERASIROX [Interacting]
     Active Substance: DEFERASIROX
     Indication: Thalassaemia beta
     Dosage: UNK
     Route: 065
  2. MESALAMINE [Interacting]
     Active Substance: MESALAMINE
     Indication: Intestinal ulcer
     Dosage: 1200 MG, QD
     Route: 065
  3. MESALAMINE [Interacting]
     Active Substance: MESALAMINE
     Indication: Colitis ulcerative
  4. SALICYLATES NOS [Suspect]
     Active Substance: UNSPECIFIED INGREDIENT
     Indication: Intestinal ulcer
     Dosage: UNK
     Route: 065

REACTIONS (8)
  - Toxicity to various agents [Recovered/Resolved]
  - Acidosis [Recovered/Resolved]
  - Acute haemorrhagic ulcerative colitis [Recovered/Resolved]
  - Drug interaction [Recovered/Resolved]
  - Abdominal pain [Recovered/Resolved]
  - Pyrexia [Recovered/Resolved]
  - Diarrhoea [Recovered/Resolved]
  - Fatigue [Recovered/Resolved]
